FAERS Safety Report 8885346 (Version 1)
Quarter: 2012Q4

REPORT INFORMATION
  Report Type: 
  Country: US (occurrence: US)
  Receive Date: 20121101
  Receipt Date: 20121101
  Transmission Date: 20130627
  Serious: Yes (Hospitalization)
  Sender: FDA-Public Use
  Company Number: US-B.I. PHARMACEUTICALS,INC./RIDGEFIELD-2012-BP-26957BP

PATIENT
  Age: 74 Year
  Sex: Male

DRUGS (3)
  1. PRADAXA [Suspect]
     Indication: ATRIAL FIBRILLATION
     Dosage: 300 mg
     Route: 048
     Dates: end: 20121029
  2. VALSARTAN HCT [Concomitant]
  3. DRONEDERONE [Concomitant]

REACTIONS (1)
  - Gastrointestinal haemorrhage [Recovered/Resolved]
